FAERS Safety Report 4766621-1 (Version None)
Quarter: 2005Q3

REPORT INFORMATION
  Report Type: 
  Country: None (occurrence: None)
  Receive Date: 20050908
  Receipt Date: 20050830
  Transmission Date: 20060218
  Serious: Yes (Hospitalization)
  Sender: FDA-Public Use
  Company Number: 234024K05USA

PATIENT
  Age: 58 Year
  Sex: Female

DRUGS (1)
  1. REBIF [Suspect]
     Indication: MULTIPLE SCLEROSIS
     Dosage: 44 MCG, 3 IN 1 WEEKS, SUBCUTANEOUS
     Route: 058
     Dates: start: 20030422

REACTIONS (9)
  - BURNING SENSATION [None]
  - COGNITIVE DISORDER [None]
  - DISORIENTATION [None]
  - FATIGUE [None]
  - HYPOAESTHESIA [None]
  - PERIPHERAL COLDNESS [None]
  - SKIN WARM [None]
  - SPEECH DISORDER [None]
  - TREMOR [None]
